FAERS Safety Report 5681041-3 (Version None)
Quarter: 2008Q1

REPORT INFORMATION
  Report Type: 
  Country: None (occurrence: None)
  Receive Date: 20080325
  Receipt Date: 20080313
  Transmission Date: 20080703
  Serious: Yes (Other)
  Sender: FDA-Public Use
  Company Number: 2008SP005202

PATIENT
  Age: 18 Year
  Sex: Male

DRUGS (3)
  1. CORICIDIN HBP CHEST CONGESTION + COUGH (DEXTROMETHORPHAN HYDROBROMIDE/ [Suspect]
     Indication: DRUG USE FOR UNKNOWN INDICATION
     Dosage: 8 DF; PO, 8 DF; PO, 10 DF; PO
     Route: 047
  2. CORICIDIN HBP CHEST CONGESTION + COUGH (DEXTROMETHORPHAN HYDROBROMIDE/ [Suspect]
     Indication: DRUG USE FOR UNKNOWN INDICATION
     Dosage: 8 DF; PO, 8 DF; PO, 10 DF; PO
     Route: 047
  3. CORICIDIN HBP CHEST CONGESTION + COUGH (DEXTROMETHORPHAN HYDROBROMIDE/ [Suspect]
     Indication: DRUG USE FOR UNKNOWN INDICATION
     Dosage: 8 DF; PO, 8 DF; PO, 10 DF; PO
     Route: 047

REACTIONS (7)
  - CHEST DISCOMFORT [None]
  - HYPERHIDROSIS [None]
  - HYPERTENSION [None]
  - PALLOR [None]
  - PALPITATIONS [None]
  - PARANOIA [None]
  - TACHYCARDIA [None]
